FAERS Safety Report 11504361 (Version 1)
Quarter: 2015Q3

REPORT INFORMATION
  Report Type: Spontaneous
  Country: US (occurrence: US)
  Receive Date: 20150915
  Receipt Date: 20150915
  Transmission Date: 20151125
  Serious: Yes (Hospitalization)
  Sender: FDA-Public Use
  Company Number: US-ACCORD-029126

PATIENT
  Sex: Female

DRUGS (1)
  1. GLIMEPRIDE ACCORD [Suspect]
     Active Substance: GLIMEPIRIDE
     Indication: BLOOD GLUCOSE INCREASED
     Dosage: STRENGTH: 1 MG
     Route: 048
     Dates: start: 20150129, end: 20150207

REACTIONS (3)
  - Product quality issue [None]
  - Urticaria [Recovering/Resolving]
  - Product substitution issue [Unknown]
